FAERS Safety Report 8081485-9 (Version None)
Quarter: 2012Q1

REPORT INFORMATION
  Report Type: 
  Country: None (occurrence: None)
  Receive Date: 20120130
  Receipt Date: 20120120
  Transmission Date: 20120608
  Serious: Yes (Hospitalization)
  Sender: FDA-Public Use
  Company Number: PHHY2012TR003750

PATIENT
  Age: 77 Year
  Sex: Male
  Weight: 70 kg

DRUGS (3)
  1. EXELON [Suspect]
     Dosage: UNK
     Route: 062
  2. EXELON [Suspect]
     Indication: DEMENTIA
     Dosage: UNK
     Route: 062
  3. EXELON [Suspect]
     Dosage: 9 DF, ONCE/SINGLE
     Route: 062
     Dates: start: 20120111

REACTIONS (8)
  - OVERDOSE [None]
  - BRADYCARDIA [None]
  - VOMITING [None]
  - WRONG TECHNIQUE IN DRUG USAGE PROCESS [None]
  - HYPERTENSION [None]
  - DEPRESSED LEVEL OF CONSCIOUSNESS [None]
  - TOXICITY TO VARIOUS AGENTS [None]
  - NAUSEA [None]
